FAERS Safety Report 16804033 (Version 1)
Quarter: 2019Q3

REPORT INFORMATION
  Report Type: Spontaneous
  Country: FR (occurrence: FR)
  Receive Date: 20190913
  Receipt Date: 20190913
  Transmission Date: 20191005
  Serious: Yes (Hospitalization, Other)
  Sender: FDA-Public Use
  Company Number: FR-AUROBINDO-AUR-APL-2018-014207

PATIENT
  Age: 68 Year
  Sex: Male
  Weight: 82 kg

DRUGS (6)
  1. OXALIPLATIN. [Suspect]
     Active Substance: OXALIPLATIN
     Indication: COLON CANCER METASTATIC
     Dosage: UNK
     Route: 042
  2. IRINOTECAN [Suspect]
     Active Substance: IRINOTECAN
     Indication: COLON CANCER METASTATIC
     Dosage: UNK
     Route: 042
  3. STIVARGA [Suspect]
     Active Substance: REGORAFENIB
     Indication: COLON CANCER METASTATIC
     Dosage: 80 MILLIGRAM, ONCE A DAY
     Route: 048
     Dates: start: 20161212, end: 20170118
  4. AVASTIN [Suspect]
     Active Substance: BEVACIZUMAB
     Indication: COLON CANCER METASTATIC
     Dosage: UNK
     Route: 042
  5. FLUOROURACILE [Suspect]
     Active Substance: FLUOROURACIL
     Indication: COLON CANCER METASTATIC
     Dosage: UNK
     Route: 042
  6. XELODA [Suspect]
     Active Substance: CAPECITABINE
     Indication: COLON CANCER METASTATIC
     Dosage: UNK
     Route: 065

REACTIONS (2)
  - Ejection fraction decreased [Recovering/Resolving]
  - Congestive cardiomyopathy [Not Recovered/Not Resolved]

NARRATIVE: CASE EVENT DATE: 201701
